FAERS Safety Report 6145923-0 (Version None)
Quarter: 2009Q2

REPORT INFORMATION
  Report Type: 
  Country: None (occurrence: None)
  Receive Date: 20090407
  Receipt Date: 20090325
  Transmission Date: 20091009
  Serious: Yes (Hospitalization)
  Sender: FDA-Public Use
  Company Number: US-ROCHE-616231

PATIENT
  Sex: Male

DRUGS (13)
  1. PEG-INTERFERON ALFA 2A (RO 25-8310) [Suspect]
     Indication: HEPATITIS C
     Route: 058
     Dates: start: 20081023
  2. RIBAVIRIN [Suspect]
     Indication: HEPATITIS C
     Route: 048
     Dates: start: 20081023, end: 20081201
  3. RIBAVIRIN [Suspect]
     Route: 048
     Dates: start: 20080116
  4. BLINDED VX-950 [Suspect]
     Indication: HEPATITIS C
     Route: 048
     Dates: start: 20081023, end: 20081202
  5. LISINOPRIL AND HYDROCHLOROTHIAZIDE [Concomitant]
     Indication: HYPERTENSION
     Route: 048
     Dates: start: 20060101, end: 20090212
  6. SIMVASTATIN [Concomitant]
     Route: 048
     Dates: start: 20060101, end: 20081022
  7. TEMAZEPAM [Concomitant]
     Indication: INSOMNIA
     Route: 048
     Dates: start: 20081028, end: 20090225
  8. PREPARATION H SUPPOSITORY [Concomitant]
     Route: 054
     Dates: start: 20081027, end: 20081113
  9. HYDROCORTISONE SUPPOSITORY [Concomitant]
     Dosage: REPORTED AS; HYDROCORTISONE ACETATE RECTAL SUPPOSITORY
     Route: 054
     Dates: start: 20081106, end: 20081203
  10. METFORMIN HCL [Concomitant]
     Route: 048
     Dates: start: 20081120
  11. VICODIN [Concomitant]
     Indication: BACK PAIN
     Route: 048
     Dates: start: 20081211, end: 20090302
  12. METOCLOPRAMIDE [Concomitant]
     Indication: NAUSEA
     Route: 048
     Dates: start: 20081113, end: 20081203
  13. ATENOLOL [Concomitant]
     Indication: HYPERTENSION
     Dates: start: 20090214

REACTIONS (2)
  - ATRIAL FIBRILLATION [None]
  - SYNCOPE [None]
